FAERS Safety Report 21265771 (Version 1)
Quarter: 2022Q3

REPORT INFORMATION
  Report Type: Spontaneous
  Country: US (occurrence: US)
  Receive Date: 20220829
  Receipt Date: 20220829
  Transmission Date: 20221026
  Serious: Yes (Hospitalization)
  Sender: FDA-Public Use
  Company Number: US-G1 THERAPEUTICS-2022G1US0000147

PATIENT
  Sex: Female

DRUGS (2)
  1. COSELA [Suspect]
     Active Substance: TRILACICLIB DIHYDROCHLORIDE
     Indication: Small cell lung cancer extensive stage
  2. ICOSAPENT [Suspect]
     Active Substance: ICOSAPENT

REACTIONS (2)
  - Platelet count decreased [Unknown]
  - Drug ineffective [Unknown]
